FAERS Safety Report 24189262 (Version 1)
Quarter: 2024Q3

REPORT INFORMATION
  Report Type: Report from Study
  Country: CA (occurrence: CA)
  Receive Date: 20240808
  Receipt Date: 20240808
  Transmission Date: 20241017
  Serious: Yes (Other)
  Sender: BAYER
  Company Number: CA-BAYER-2024A110373

PATIENT
  Age: 50 Year
  Sex: Female

DRUGS (2)
  1. STIVARGA [Suspect]
     Active Substance: REGORAFENIB MONOHYDRATE
     Indication: Colorectal cancer
     Dosage: 80 MG, QD
     Dates: start: 20240718, end: 20240724
  2. STIVARGA [Suspect]
     Active Substance: REGORAFENIB MONOHYDRATE
     Indication: Colorectal cancer
     Dosage: 120 MG, QD
     Dates: start: 20240724

REACTIONS (6)
  - Mobility decreased [Unknown]
  - Pain [Unknown]
  - Feeling abnormal [Unknown]
  - Feeling hot [Unknown]
  - Crying [Unknown]
  - Off label use [None]

NARRATIVE: CASE EVENT DATE: 20240718
